FAERS Safety Report 13209027 (Version 1)
Quarter: 2017Q1

REPORT INFORMATION
  Report Type: Spontaneous
  Country: CH (occurrence: CH)
  Receive Date: 20170209
  Receipt Date: 20170209
  Transmission Date: 20170428
  Serious: Yes (Other)
  Sender: FDA-Public Use
  Company Number: CH-ROCHE-1890601

PATIENT
  Age: 1 Year
  Sex: Male
  Weight: 12 kg

DRUGS (4)
  1. ROCEPHIN [Suspect]
     Active Substance: CEFTRIAXONE SODIUM
     Indication: SEPTIC SHOCK
     Route: 065
     Dates: start: 201701, end: 201701
  2. PRIVIGEN [Suspect]
     Active Substance: HUMAN IMMUNOGLOBULIN G
     Indication: KAWASAKI^S DISEASE
     Route: 065
  3. INTRATECT [Suspect]
     Active Substance: HUMAN IMMUNOGLOBULIN G
     Indication: KAWASAKI^S DISEASE
     Route: 042
     Dates: start: 20170115, end: 20170115
  4. TAVEGYL [Suspect]
     Active Substance: CLEMASTINE FUMARATE
     Indication: ANAPHYLACTIC REACTION
     Route: 065
     Dates: start: 201701, end: 201701

REACTIONS (7)
  - Eczema [Recovered/Resolved]
  - Anaphylactic reaction [Recovering/Resolving]
  - Chills [Recovering/Resolving]
  - Eczema eyelids [Recovered/Resolved]
  - Hypotension [Recovering/Resolving]
  - Eyelids pruritus [Recovered/Resolved]
  - Pyrexia [Recovering/Resolving]

NARRATIVE: CASE EVENT DATE: 20170115
